FAERS Safety Report 24614212 (Version 8)
Quarter: 2025Q4

REPORT INFORMATION
  Report Type: Report from Study
  Country: US (occurrence: None)
  Receive Date: 20241113
  Receipt Date: 20251111
  Transmission Date: 20260117
  Serious: Yes (Other)
  Sender: UCB
  Company Number: US-UCBSA-2024057829

PATIENT
  Age: 14 Year
  Weight: 54.4 kg

DRUGS (20)
  1. FENFLURAMINE [Suspect]
     Active Substance: FENFLURAMINE
     Indication: Seizure
     Dosage: 6 MILLILITER, 2X/DAY (BID)
  2. FENFLURAMINE [Suspect]
     Active Substance: FENFLURAMINE
     Indication: Severe myoclonic epilepsy of infancy
     Dosage: 2.2 MILLIGRAM, 2X/DAY (BID)
  3. FENFLURAMINE [Suspect]
     Active Substance: FENFLURAMINE
     Indication: Autism spectrum disorder
     Dosage: 2.20 MILLIGRAM, 2X/DAY (BID)
  4. FENFLURAMINE [Suspect]
     Active Substance: FENFLURAMINE
     Dosage: 6 MILLILITER, 2X/DAY (BID)
  5. FENFLURAMINE [Suspect]
     Active Substance: FENFLURAMINE
     Dosage: 3 MILLILITER
  6. FENFLURAMINE [Suspect]
     Active Substance: FENFLURAMINE
     Dosage: LOWERED TO 4ML IN MORNING TO HELP HER WITH SLEEP AND 3 ML EVENING
  7. FENFLURAMINE [Suspect]
     Active Substance: FENFLURAMINE
     Dosage: 5 MILLILITER
  8. VIMPAT [Suspect]
     Active Substance: LACOSAMIDE
     Indication: Product used for unknown indication
     Dosage: 6 MILLILITER, 2X/DAY (BID)
  9. VIMPAT [Suspect]
     Active Substance: LACOSAMIDE
     Dosage: 5 MILLILITER
  10. VIMPAT [Suspect]
     Active Substance: LACOSAMIDE
     Dosage: 2.5 MILLILITER
  11. EPIDIOLEX [Concomitant]
     Active Substance: CANNABIDIOL
     Indication: Product used for unknown indication
     Dosage: 200 MILLIGRAM, 2X/DAY (BID)
  12. DEPAKOTE SPRINKLE/DIVALPROEX [Concomitant]
     Indication: Seizure
     Dosage: 125 MG IN AM AND 250 MG IN PM UNK, 2X/DAY (BID)
  13. DEPAKOTE SPRINKLE/DIVALPROEX [Concomitant]
     Dosage: 250 MILLIGRAM, 2X/DAY (BID)
  14. LEVOCARNITINE [Concomitant]
     Active Substance: LEVOCARNITINE
     Indication: Liver disorder
     Dosage: 300 MILLIGRAM
  15. LEVOCARNITINE [Concomitant]
     Active Substance: LEVOCARNITINE
     Dosage: 3 MILLILITER, 2X/DAY (BID)
  16. XCOPRI [Concomitant]
     Active Substance: CENOBAMATE
     Indication: Product used for unknown indication
     Dosage: UNK
  17. ACETAMINOPHEN [Concomitant]
     Active Substance: ACETAMINOPHEN
     Indication: Pyrexia
     Dosage: 3 SUPPSOSITIRES
  18. ACETAMINOPHEN [Concomitant]
     Active Substance: ACETAMINOPHEN
     Indication: Pain
  19. AZITHROMYCIN [Concomitant]
     Active Substance: AZITHROMYCIN
     Indication: Product used for unknown indication
     Dosage: 10 MILLILITER, ONCE DAILY (QD)
  20. AZITHROMYCIN [Concomitant]
     Active Substance: AZITHROMYCIN
     Dosage: 5 MILLILITER (2-5)

REACTIONS (10)
  - Seizure [Unknown]
  - Autism spectrum disorder [Unknown]
  - Generalised tonic-clonic seizure [Unknown]
  - Feeling cold [Unknown]
  - Decreased appetite [Recovered/Resolved]
  - Insomnia [Recovered/Resolved]
  - Weight decreased [Recovered/Resolved]
  - Head injury [Unknown]
  - Drug ineffective [Unknown]
  - Product use issue [Unknown]
